FAERS Safety Report 8912121 (Version 1)
Quarter: 2012Q4

REPORT INFORMATION
  Report Type: 
  Country: US (occurrence: US)
  Receive Date: 20121115
  Receipt Date: 20121115
  Transmission Date: 20130627
  Serious: Yes (Death, Life-Threatening, Other)
  Sender: FDA-Public Use
  Company Number: US-ROXANE LABORATORIES, INC.-2012-RO-02367RO

PATIENT
  Age: 43 Year
  Sex: Male

DRUGS (5)
  1. DIAZEPAM [Suspect]
  2. IBOGAINE [Suspect]
     Indication: DRUG DETOXIFICATION
  3. IBOGAINE [Suspect]
     Indication: ALCOHOLISM
  4. COCAINE [Suspect]
  5. TRIMETHOBENZAMIDE [Suspect]

REACTIONS (6)
  - Cardiac valve disease [Fatal]
  - Toxicity to various agents [Fatal]
  - Cardiac arrest [Unknown]
  - Grand mal convulsion [Unknown]
  - Congestive cardiomyopathy [Unknown]
  - Pulmonary oedema [Unknown]
